FAERS Safety Report 9657203 (Version 5)
Quarter: 2014Q4

REPORT INFORMATION
  Report Type: Spontaneous
  Country: US (occurrence: US)
  Receive Date: 20131030
  Receipt Date: 20141212
  Transmission Date: 20150529
  Serious: Yes (Hospitalization, Other)
  Sender: FDA-Public Use
  Company Number: US-BAYER-2013-131922

PATIENT
  Age: 33 Year
  Sex: Female
  Weight: 81.63 kg

DRUGS (4)
  1. MOTRIN [Concomitant]
     Active Substance: IBUPROFEN
  2. IBUPROFEN. [Concomitant]
     Active Substance: IBUPROFEN
  3. AMITRIPTYLINE [Concomitant]
     Active Substance: AMITRIPTYLINE
  4. MIRENA [Suspect]
     Active Substance: LEVONORGESTREL
     Indication: CONTRACEPTION
     Dosage: 20 MCG/24HR, CONT
     Route: 015
     Dates: start: 20060316, end: 20080205

REACTIONS (40)
  - Device difficult to use [None]
  - Vaginal inflammation [None]
  - Crying [None]
  - Migraine [None]
  - Cystitis interstitial [None]
  - Uterine cervix stenosis [None]
  - Anxiety [None]
  - Frustration [None]
  - Eye pain [None]
  - Anhedonia [None]
  - Pelvic discomfort [None]
  - Dyspareunia [None]
  - Vulvovaginal burning sensation [None]
  - Constipation [None]
  - Feeling of despair [None]
  - Complication of device removal [None]
  - Abdominal pain [None]
  - Vulvovaginal dryness [None]
  - Myalgia [None]
  - Embedded device [None]
  - Medical device pain [None]
  - Off label use [None]
  - Dysstasia [None]
  - Photophobia [None]
  - Urine output decreased [None]
  - Haemorrhoids [None]
  - Micturition urgency [None]
  - Device breakage [None]
  - Depression [None]
  - Pelvic pain [None]
  - Dysuria [None]
  - Vulvovaginal pruritus [None]
  - Arthralgia [None]
  - Uterine scar [None]
  - Injury [None]
  - Device defective [None]
  - Fatigue [None]
  - Insomnia [None]
  - Musculoskeletal pain [None]
  - Pollakiuria [None]

NARRATIVE: CASE EVENT DATE: 200802
